FAERS Safety Report 8523005-8 (Version None)
Quarter: 2012Q3

REPORT INFORMATION
  Report Type: 
  Country: None (occurrence: None)
  Receive Date: 20120720
  Receipt Date: 20120705
  Transmission Date: 20120928
  Serious: Yes (Other)
  Sender: FDA-Public Use
  Company Number: RU-009507513-1207RUS001095

PATIENT

DRUGS (3)
  1. ACETAMINOPHEN [Concomitant]
     Dosage: UNK
     Dates: start: 20120615, end: 20120617
  2. ABACAVIR SULFATE/LAMIVUDINE [Concomitant]
  3. RALTEGRAVIR [Suspect]
     Indication: HIV INFECTION
     Dosage: 400 MG, BID
     Route: 048
     Dates: start: 20120207, end: 20120629

REACTIONS (1)
  - HEPATOTOXICITY [None]
